FAERS Safety Report 9101162 (Version 2)
Quarter: 2013Q1

REPORT INFORMATION
  Report Type: Spontaneous
  Country: JP (occurrence: JP)
  Receive Date: 20130215
  Receipt Date: 20130221
  Transmission Date: 20140127
  Serious: Yes (Death, Hospitalization)
  Sender: FDA-Public Use
  Company Number: JP-BAXTER-2013BAX005215

PATIENT
  Sex: Female
  Weight: 55 kg

DRUGS (5)
  1. DIANEAL-N PD-2 1.5 PD SOLUTION [Suspect]
     Indication: RENAL FAILURE CHRONIC
     Route: 033
  2. DIANEAL-N PD-2 1.5 PD SOLUTION [Suspect]
     Route: 033
     Dates: start: 20130202, end: 20130205
  3. DIANEAL-N PD-2 2.5 PD SOLUTION [Suspect]
     Indication: RENAL FAILURE CHRONIC
     Route: 033
  4. DIANEAL-N PD-2 2.5 PD SOLUTION [Suspect]
     Route: 033
     Dates: start: 20130202, end: 20130205
  5. EXTRANEAL PD SOLUTION [Suspect]
     Indication: RENAL FAILURE CHRONIC
     Route: 033
     Dates: end: 20130205

REACTIONS (1)
  - Cardiac failure acute [Fatal]
